FAERS Safety Report 9691171 (Version 2)
Quarter: 2013Q4

REPORT INFORMATION
  Report Type: Report from Study
  Country: US (occurrence: US)
  Receive Date: 20131115
  Receipt Date: 20131231
  Transmission Date: 20140711
  Serious: Yes (Death, Hospitalization)
  Sender: FDA-Public Use
  Company Number: US-ROCHE-1299824

PATIENT
  Age: 63 Year
  Sex: Male

DRUGS (9)
  1. AVASTIN [Suspect]
     Indication: COLON CANCER
     Dosage: 2 BAGS
     Route: 065
     Dates: start: 20131022, end: 20131025
  2. AVASTIN [Suspect]
     Indication: HEPATIC CANCER
  3. AVASTIN [Suspect]
     Indication: MALIGNANT SPLENIC NEOPLASM
  4. AVASTIN [Suspect]
     Indication: RECTAL CANCER
  5. XELODA [Suspect]
     Indication: COLON CANCER
     Route: 048
     Dates: start: 20131022, end: 20131025
  6. XELODA [Suspect]
     Indication: RECTAL CANCER
  7. XELODA [Suspect]
     Indication: MALIGNANT SPLENIC NEOPLASM
  8. XELODA [Suspect]
     Indication: HEPATIC CANCER
  9. METOPROLOL AL [Concomitant]
     Indication: HYPERTENSION
     Dosage: DISCONTINUED, HTN RESOLVED
     Route: 065

REACTIONS (9)
  - Death [Fatal]
  - Therapy cessation [Unknown]
  - Nausea [Not Recovered/Not Resolved]
  - Vomiting [Recovered/Resolved]
  - Diarrhoea [Not Recovered/Not Resolved]
  - Asthenia [Not Recovered/Not Resolved]
  - Decreased appetite [Recovering/Resolving]
  - Malaise [Unknown]
  - Hepatic enzyme abnormal [Not Recovered/Not Resolved]
